FAERS Safety Report 22054520 (Version 1)
Quarter: 2023Q1

REPORT INFORMATION
  Report Type: Spontaneous
  Country: US (occurrence: US)
  Receive Date: 20230302
  Receipt Date: 20230302
  Transmission Date: 20230418
  Serious: No
  Sender: FDA-Public Use
  Company Number: US-SANOFI-01507151

PATIENT
  Age: 70 Year
  Sex: Male

DRUGS (1)
  1. DUPIXENT [Suspect]
     Active Substance: DUPILUMAB
     Indication: Asthma
     Dosage: UNK
     Dates: start: 202302

REACTIONS (5)
  - Dysphonia [Unknown]
  - Wheezing [Unknown]
  - Throat irritation [Unknown]
  - Oropharyngeal pain [Unknown]
  - Pruritus [Unknown]

NARRATIVE: CASE EVENT DATE: 20230201
